FAERS Safety Report 9640469 (Version 1)
Quarter: 2013Q4

REPORT INFORMATION
  Report Type: Spontaneous
  Country: US (occurrence: US)
  Receive Date: 20131023
  Receipt Date: 20131023
  Transmission Date: 20140711
  Serious: No
  Sender: FDA-Public Use
  Company Number: US-ABBVIE-13P-163-1090876-00

PATIENT
  Sex: Female

DRUGS (1)
  1. LUPRON DEPOT [Suspect]
     Indication: ENDOMETRIOSIS

REACTIONS (6)
  - Gait disturbance [Unknown]
  - Migraine [Unknown]
  - Mood swings [Unknown]
  - Arthralgia [Unknown]
  - Activities of daily living impaired [Unknown]
  - Activities of daily living impaired [Unknown]
